FAERS Safety Report 21415093 (Version 3)
Quarter: 2022Q4

REPORT INFORMATION
  Report Type: Report from Study
  Country: PE (occurrence: PE)
  Receive Date: 20221006
  Receipt Date: 20221208
  Transmission Date: 20230113
  Serious: Yes (Other)
  Sender: FDA-Public Use
  Company Number: PE-NOVARTISPH-NVSC2022PE224467

PATIENT
  Age: 32 Year
  Sex: Male

DRUGS (2)
  1. COSENTYX [Suspect]
     Active Substance: SECUKINUMAB
     Indication: Psoriasis
     Dosage: 300 MG, QMO (FOR 5 WEEKS OF IMPREGNATION AND THEN A DOSE OF 300 MG MONTHLY)
     Route: 058
     Dates: start: 202112, end: 202205
  2. COSENTYX [Suspect]
     Active Substance: SECUKINUMAB
     Dosage: 300 MG, QMO
     Route: 058
     Dates: start: 20220917

REACTIONS (9)
  - Syncope [Unknown]
  - Dizziness [Unknown]
  - Arthralgia [Recovered/Resolved]
  - Pyrexia [Recovering/Resolving]
  - Oropharyngeal pain [Recovering/Resolving]
  - Temperature intolerance [Recovering/Resolving]
  - Condition aggravated [Not Recovered/Not Resolved]
  - Psoriasis [Unknown]
  - Dermatitis allergic [Unknown]

NARRATIVE: CASE EVENT DATE: 20220701
